FAERS Safety Report 24187280 (Version 1)
Quarter: 2024Q3

REPORT INFORMATION
  Report Type: Spontaneous
  Country: US (occurrence: US)
  Receive Date: 20240808
  Receipt Date: 20240808
  Transmission Date: 20241016
  Serious: Yes (Death, Other)
  Sender: ALKEM
  Company Number: US-ALKEM LABORATORIES LIMITED-US-ALKEM-2024-17786

PATIENT
  Age: 52 Year
  Sex: Male

DRUGS (2)
  1. GABAPENTIN [Suspect]
     Active Substance: GABAPENTIN
     Indication: Back pain
     Dosage: UNK
     Route: 065
  2. GABAPENTIN [Suspect]
     Active Substance: GABAPENTIN
     Dosage: UNK; INCREASED DOSE
     Route: 065

REACTIONS (6)
  - Completed suicide [Fatal]
  - Behaviour disorder [Unknown]
  - Insomnia [Unknown]
  - Nervousness [Unknown]
  - Personality change [Unknown]
  - Agitation [Unknown]
